FAERS Safety Report 6983627-2 (Version None)
Quarter: 2010Q3

REPORT INFORMATION
  Report Type: 
  Country: None (occurrence: None)
  Receive Date: 20100914
  Receipt Date: 20081104
  Transmission Date: 20110219
  Serious: No
  Sender: FDA-Public Use
  Company Number: US-WYE-H06766008

PATIENT
  Age: 90 Year
  Sex: Male
  Weight: 64.92 kg

DRUGS (8)
  1. ADVIL LIQUI-GELS [Suspect]
     Indication: PAIN
     Route: 048
     Dates: start: 20081001, end: 20081103
  2. ADVIL LIQUI-GELS [Suspect]
     Indication: PROSTATE CANCER
  3. ATENOLOL [Concomitant]
  4. COSOPT [Concomitant]
  5. LUMIGAN [Concomitant]
  6. ALPHAGAN [Concomitant]
  7. ZOCOR [Concomitant]
  8. ALFUZOSIN [Concomitant]

REACTIONS (2)
  - CONDITION AGGRAVATED [None]
  - GLAUCOMA [None]
